FAERS Safety Report 9501281 (Version 2)
Quarter: 2013Q4

REPORT INFORMATION
  Report Type: Spontaneous
  Country: KP (occurrence: KR)
  Receive Date: 20130905
  Receipt Date: 20131209
  Transmission Date: 20140711
  Serious: Yes (Other)
  Sender: FDA-Public Use
  Company Number: KR-SPECTRUM PHARMACEUTICALS, INC.-13-F-KR-00253

PATIENT
  Age: 64 Year
  Sex: Female

DRUGS (1)
  1. FOLOTYN [Suspect]
     Indication: PERIPHERAL T-CELL LYMPHOMA UNSPECIFIED
     Dosage: 40 MG, 1 CYCLE 6 X INJECTION
     Route: 042
     Dates: start: 20130704, end: 20130808

REACTIONS (1)
  - Disease progression [Not Recovered/Not Resolved]
